FAERS Safety Report 23487451 (Version 1)
Quarter: 2024Q1

REPORT INFORMATION
  Report Type: Report from Study
  Country: IT (occurrence: IT)
  Receive Date: 20240206
  Receipt Date: 20240206
  Transmission Date: 20240410
  Serious: Yes (Other)
  Sender: FDA-Public Use
  Company Number: None

PATIENT
  Age: 17 Year
  Sex: Female

DRUGS (3)
  1. ZOLOFT [Suspect]
     Active Substance: SERTRALINE HYDROCHLORIDE
     Indication: Product used for unknown indication
     Dosage: 800 MILLIGRAM (16 TABLETS 50 MILLIGRAM)
     Route: 048
     Dates: start: 20240110, end: 20240110
  2. XANAX [Suspect]
     Active Substance: ALPRAZOLAM
     Indication: Product used for unknown indication
     Dosage: 14.5 MILLIGRAM (29 TABLETS 0,5 MGXANAX 0,5 MG PROLONGED RELEASE)
     Route: 048
     Dates: start: 20240110, end: 20240110
  3. SEROQUEL [Suspect]
     Active Substance: QUETIAPINE FUMARATE
     Indication: Product used for unknown indication
     Dosage: 300 MILLIGRAM (12 TABLETS 25 MG)
     Route: 048
     Dates: start: 20240110, end: 20240110

REACTIONS (2)
  - Loss of consciousness [Recovered/Resolved]
  - Drug abuse [Unknown]

NARRATIVE: CASE EVENT DATE: 20240110
